FAERS Safety Report 26060232 (Version 2)
Quarter: 2025Q4

REPORT INFORMATION
  Report Type: Spontaneous
  Country: US (occurrence: US)
  Receive Date: 20251118
  Receipt Date: 20251120
  Transmission Date: 20260117
  Serious: Yes (Hospitalization)
  Sender: TEVA
  Company Number: US-TEVA-VS-3389543

PATIENT
  Age: 69 Year
  Sex: Female

DRUGS (2)
  1. HYDROXYCHLOROQUINE [Suspect]
     Active Substance: HYDROXYCHLOROQUINE
     Indication: Rheumatoid arthritis
     Route: 065
  2. ABATACEPT [Concomitant]
     Active Substance: ABATACEPT
     Indication: Rheumatoid arthritis
     Route: 065
     Dates: start: 2016

REACTIONS (8)
  - Toxicity to various agents [Recovering/Resolving]
  - Supraventricular tachycardia [Recovering/Resolving]
  - Microvascular coronary artery disease [Recovering/Resolving]
  - Supraventricular extrasystoles [Recovering/Resolving]
  - Heart failure with preserved ejection fraction [Recovering/Resolving]
  - Cardiomyopathy [Recovering/Resolving]
  - Diastolic dysfunction [Recovering/Resolving]
  - Ventricular extrasystoles [Recovering/Resolving]
